FAERS Safety Report 24935896 (Version 1)
Quarter: 2025Q1

REPORT INFORMATION
  Report Type: Report from Study
  Country: CA (occurrence: CA)
  Receive Date: 20250206
  Receipt Date: 20250206
  Transmission Date: 20250409
  Serious: Yes (Other)
  Sender: EXELIXIS
  Company Number: CA-IPSEN Group, Research and Development-2024-18915

PATIENT
  Sex: Male

DRUGS (10)
  1. CABOMETYX [Suspect]
     Active Substance: CABOZANTINIB S-MALATE
     Indication: Renal cell carcinoma
     Dosage: 60 MG, QD
     Route: 048
     Dates: start: 20230109, end: 202405
  2. FRAGMIN [Concomitant]
     Active Substance: DALTEPARIN SODIUM
  3. DUTASTERIDE [Concomitant]
     Active Substance: DUTASTERIDE
  4. AMLODIPINE [Concomitant]
     Active Substance: AMLODIPINE BESYLATE
  5. TELMISARTAN [Concomitant]
     Active Substance: TELMISARTAN
  6. MESALAMINE [Concomitant]
     Active Substance: MESALAMINE
  7. ALFUZOSIN [Concomitant]
     Active Substance: ALFUZOSIN
  8. Salofalk [Concomitant]
  9. JENTADUETO [Concomitant]
     Active Substance: LINAGLIPTIN\METFORMIN HYDROCHLORIDE
  10. JARDIANCE [Concomitant]
     Active Substance: EMPAGLIFLOZIN

REACTIONS (1)
  - Malignant neoplasm progression [Unknown]
